FAERS Safety Report 18433045 (Version 4)
Quarter: 2020Q4

REPORT INFORMATION
  Report Type: Spontaneous
  Country: GB (occurrence: GB)
  Receive Date: 20201027
  Receipt Date: 20201116
  Transmission Date: 20210114
  Serious: Yes (Hospitalization, Other)
  Sender: FDA-Public Use
  Company Number: GB-MYLANLABS-2020M1090044

PATIENT
  Age: 12 Year
  Sex: Female

DRUGS (12)
  1. CEFTRIAXONE. [Concomitant]
     Active Substance: CEFTRIAXONE
     Indication: PRODUCT USED FOR UNKNOWN INDICATION
     Dosage: UNK
     Route: 042
  2. TOCILIZUMAB. [Suspect]
     Active Substance: TOCILIZUMAB
     Indication: POLYARTHRITIS
     Dosage: UNK
     Route: 065
  3. ETANERCEPT [Suspect]
     Active Substance: ETANERCEPT
     Indication: POLYARTHRITIS
     Dosage: UNK
     Route: 065
  4. METHOTREXATE. [Concomitant]
     Active Substance: METHOTREXATE
     Indication: JUVENILE IDIOPATHIC ARTHRITIS
  5. CLARITHROMYCIN. [Concomitant]
     Active Substance: CLARITHROMYCIN
     Indication: PRODUCT USED FOR UNKNOWN INDICATION
     Dosage: UNK
     Route: 065
  6. METHYLPREDNISOLONE. [Concomitant]
     Active Substance: METHYLPREDNISOLONE
     Indication: PRODUCT USED FOR UNKNOWN INDICATION
     Dosage: UNK
     Route: 065
  7. METHOTREXATE. [Concomitant]
     Active Substance: METHOTREXATE
     Indication: POLYARTHRITIS
     Dosage: UNK
     Route: 065
  8. ABATACEPT [Suspect]
     Active Substance: ABATACEPT
     Indication: JUVENILE IDIOPATHIC ARTHRITIS
  9. PREDNISOLONE. [Concomitant]
     Active Substance: PREDNISOLONE
     Indication: JUVENILE IDIOPATHIC ARTHRITIS
     Dosage: 5 MILLIGRAM
     Route: 065
  10. CEFTRIAXONE. [Suspect]
     Active Substance: CEFTRIAXONE
     Indication: PRODUCT USED FOR UNKNOWN INDICATION
     Dosage: UNK
  11. ABATACEPT [Suspect]
     Active Substance: ABATACEPT
     Indication: POLYARTHRITIS
     Dosage: UNK UNK, 3XW
     Route: 042
  12. ACICLOVIR [Concomitant]
     Active Substance: ACYCLOVIR
     Indication: PRODUCT USED FOR UNKNOWN INDICATION
     Dosage: UNK
     Route: 065

REACTIONS (8)
  - Off label use [Unknown]
  - Encephalitis autoimmune [Recovered/Resolved]
  - Intentional product use issue [Unknown]
  - Cognitive disorder [Recovered/Resolved]
  - Sleep disorder [Recovered/Resolved]
  - Speech disorder [Recovered/Resolved]
  - Seizure [Recovered/Resolved]
  - Movement disorder [Recovered/Resolved]
